FAERS Safety Report 6026768-9 (Version None)
Quarter: 2009Q1

REPORT INFORMATION
  Report Type: 
  Country: None (occurrence: None)
  Receive Date: 20090105
  Receipt Date: 20081229
  Transmission Date: 20090719
  Serious: No
  Sender: FDA-Public Use
  Company Number: US-JNJFOC-20081206989

PATIENT
  Sex: Male
  Weight: 72.58 kg

DRUGS (3)
  1. FENTANYL TRANSDERMAL SYSTEM [Suspect]
     Indication: BACK PAIN
     Route: 062
  2. OXYCONTIN [Concomitant]
     Indication: BACK PAIN
     Route: 048
  3. OXYCODONE [Concomitant]
     Indication: BACK PAIN
     Route: 048

REACTIONS (2)
  - APPLICATION SITE IRRITATION [None]
  - WRONG TECHNIQUE IN DRUG USAGE PROCESS [None]
